FAERS Safety Report 24822056 (Version 2)
Quarter: 2025Q1

REPORT INFORMATION
  Report Type: Spontaneous
  Country: US (occurrence: US)
  Receive Date: 20250108
  Receipt Date: 20250222
  Transmission Date: 20250409
  Serious: No
  Sender: SANOFI AVENTIS
  Company Number: US-SA-2025SA005507

PATIENT
  Age: 39 Year
  Sex: Male

DRUGS (2)
  1. DUPIXENT [Suspect]
     Active Substance: DUPILUMAB
     Indication: Nasal polyps
     Dosage: 300 MG, QOW
     Route: 058
     Dates: start: 202412
  2. DUPIXENT [Suspect]
     Active Substance: DUPILUMAB
     Indication: Asthma

REACTIONS (4)
  - Libido increased [Unknown]
  - Sinusitis [Recovering/Resolving]
  - Nasal congestion [Recovering/Resolving]
  - Rhinorrhoea [Recovering/Resolving]

NARRATIVE: CASE EVENT DATE: 20241201
